FAERS Safety Report 22853899 (Version 3)
Quarter: 2023Q4

REPORT INFORMATION
  Report Type: Report from Study
  Country: US (occurrence: US)
  Receive Date: 20230823
  Receipt Date: 20231005
  Transmission Date: 20240110
  Serious: No
  Sender: FDA-Public Use
  Company Number: US-IDORSIA-006657-2023-US

PATIENT
  Age: 78 Year
  Sex: Female
  Weight: 41.723 kg

DRUGS (3)
  1. QUVIVIQ [Suspect]
     Active Substance: DARIDOREXANT
     Indication: Insomnia
     Dosage: 50 MG, QD
     Route: 048
     Dates: start: 20230811, end: 20230815
  2. CLONAZEPAM [Concomitant]
     Active Substance: CLONAZEPAM
     Indication: Insomnia
     Dosage: 0.25 MG (HALF OF 0.5MG TABLET), QD
  3. CLONAZEPAM [Concomitant]
     Active Substance: CLONAZEPAM
     Dosage: 0.125 MG (HALF OF HALF OF 0.5MG TABLET), QD

REACTIONS (4)
  - Autoscopy [Recovered/Resolved]
  - Hallucination, visual [Recovered/Resolved]
  - Drug ineffective [Not Recovered/Not Resolved]
  - Product packaging difficult to open [Unknown]

NARRATIVE: CASE EVENT DATE: 20230812
